FAERS Safety Report 17397729 (Version 1)
Quarter: 2020Q1

REPORT INFORMATION
  Report Type: Report from Study
  Country: US (occurrence: US)
  Receive Date: 20200210
  Receipt Date: 20200210
  Transmission Date: 20200409
  Serious: Yes (Other)
  Sender: FDA-Public Use
  Company Number: US-TAKEDA-2020TUS007988

PATIENT
  Age: 45 Year
  Sex: Female

DRUGS (1)
  1. DEXLANSOPRAZOLE [Suspect]
     Active Substance: DEXLANSOPRAZOLE
     Indication: PRODUCT USED FOR UNKNOWN INDICATION
     Dosage: UNK
     Route: 065

REACTIONS (8)
  - Anaemia [Unknown]
  - Gastrointestinal tube insertion [Unknown]
  - Gastric disorder [Unknown]
  - Necrotising soft tissue infection [Unknown]
  - Hiatus hernia [Unknown]
  - Gastritis erosive [Unknown]
  - Mast cell activation syndrome [Unknown]
  - Malnutrition [Unknown]
